FAERS Safety Report 21424240 (Version 1)
Quarter: 2022Q4

REPORT INFORMATION
  Report Type: Report from Study
  Country: FR (occurrence: FR)
  Receive Date: 20221007
  Receipt Date: 20221007
  Transmission Date: 20230113
  Serious: Yes (Hospitalization)
  Sender: FDA-Public Use
  Company Number: FR-JNJFOC-20211212314

PATIENT
  Age: 68 Year
  Sex: Male
  Weight: 61 kg

DRUGS (39)
  1. CILTACABTAGENE AUTOLEUCEL [Suspect]
     Active Substance: CILTACABTAGENE AUTOLEUCEL
     Indication: Plasma cell myeloma
     Dosage: DOSE ALSO REPORTED AS 70 ML
     Route: 042
     Dates: start: 20211115, end: 20211115
  2. DARATUMUMAB [Suspect]
     Active Substance: DARATUMUMAB
     Indication: Plasma cell myeloma
     Dosage: DOSE ALSO REPORTED AS 15 ML.
     Route: 058
     Dates: start: 20210823, end: 20211018
  3. CYCLOPHOSPHAMIDE [Concomitant]
     Active Substance: CYCLOPHOSPHAMIDE
     Indication: Plasma cell myeloma
     Dosage: DOSE ALSO REPORTED AS 250 ML
     Route: 042
     Dates: start: 20211110, end: 20211112
  4. FLUDARABINE [Concomitant]
     Active Substance: FLUDARABINE PHOSPHATE
     Indication: Plasma cell myeloma
     Dosage: DOSE ALSO REPORTED AS 250 ML
     Route: 042
     Dates: start: 20211110, end: 20211112
  5. SULFAMETHOXAZOLE [Concomitant]
     Active Substance: SULFAMETHOXAZOLE
     Indication: Infection prophylaxis
     Dosage: ALSO REPORTED AS BACTRIM (SULFAMETHOXAZOLE,TRIMETHOPRIM)-1 DOSAGE FORMS
     Route: 048
     Dates: start: 20211004
  6. TRIMETHOPRIM [Concomitant]
     Active Substance: TRIMETHOPRIM
     Indication: Infection prophylaxis
     Dosage: ALSO REPORTED AS BACTRIM (SULFAMETHOXAZOLE, TRIMETHOPRIM)-1 DOSAGE FORMS.
     Route: 048
     Dates: start: 20211004
  7. LANSOPRAZOLE [Concomitant]
     Active Substance: LANSOPRAZOLE
     Indication: Gastritis prophylaxis
     Route: 048
     Dates: start: 20211110, end: 20211119
  8. TRAMADOL HYDROCHLORIDE [Concomitant]
     Active Substance: TRAMADOL HYDROCHLORIDE
     Indication: Bone pain
     Route: 042
     Dates: start: 20211111
  9. TRAMADOL HYDROCHLORIDE [Concomitant]
     Active Substance: TRAMADOL HYDROCHLORIDE
     Route: 042
     Dates: start: 20211114, end: 20211118
  10. TRAMADOL HYDROCHLORIDE [Concomitant]
     Active Substance: TRAMADOL HYDROCHLORIDE
     Route: 042
     Dates: start: 20211118, end: 20211119
  11. ACUPAN [Concomitant]
     Active Substance: NEFOPAM HYDROCHLORIDE
     Indication: Bone pain
     Route: 042
     Dates: start: 20211112
  12. PRIMPERAN [Concomitant]
     Active Substance: METOCLOPRAMIDE HYDROCHLORIDE
     Indication: Prophylaxis of nausea and vomiting
     Route: 042
     Dates: start: 20211113
  13. DUPHALAC [Concomitant]
     Active Substance: LACTULOSE
     Indication: Constipation prophylaxis
     Route: 048
     Dates: start: 20211113
  14. LEUCOVORIN CALCIUM [Concomitant]
     Active Substance: LEUCOVORIN CALCIUM
     Indication: Anaemia prophylaxis
     Route: 048
     Dates: start: 20211004
  15. SODIUM BICARBONATE [Concomitant]
     Active Substance: SODIUM BICARBONATE
     Indication: Blood creatinine increased
     Route: 042
     Dates: start: 20211119, end: 20211121
  16. SODIUM BICARBONATE [Concomitant]
     Active Substance: SODIUM BICARBONATE
     Route: 042
     Dates: start: 20211121, end: 20211121
  17. SODIUM BICARBONATE [Concomitant]
     Active Substance: SODIUM BICARBONATE
     Route: 042
     Dates: start: 20211123, end: 20211124
  18. SODIUM BICARBONATE [Concomitant]
     Active Substance: SODIUM BICARBONATE
     Route: 042
     Dates: start: 20211124, end: 20211125
  19. DEXAMETHASONE [Concomitant]
     Active Substance: DEXAMETHASONE
     Indication: Cytokine release syndrome
     Route: 042
     Dates: start: 20211120, end: 20211121
  20. DEXAMETHASONE [Concomitant]
     Active Substance: DEXAMETHASONE
     Indication: Blood creatinine increased
     Route: 042
     Dates: start: 20211123, end: 20211124
  21. ELIQUIS [Concomitant]
     Active Substance: APIXABAN
     Indication: Atrial fibrillation
     Route: 048
     Dates: start: 20211119, end: 20211124
  22. ELIQUIS [Concomitant]
     Active Substance: APIXABAN
     Route: 048
     Dates: end: 20211118
  23. TOCILIZUMAB [Concomitant]
     Active Substance: TOCILIZUMAB
     Indication: Cytokine release syndrome
     Route: 042
     Dates: start: 20211121, end: 20211121
  24. TOCILIZUMAB [Concomitant]
     Active Substance: TOCILIZUMAB
     Route: 042
     Dates: start: 20211123, end: 20211123
  25. TOCILIZUMAB [Concomitant]
     Active Substance: TOCILIZUMAB
     Route: 042
     Dates: start: 20211124, end: 20211124
  26. TOCILIZUMAB [Concomitant]
     Active Substance: TOCILIZUMAB
     Route: 042
     Dates: start: 20211122, end: 20211122
  27. NACL SOLUTION [Concomitant]
     Indication: Prophylaxis
     Route: 042
     Dates: start: 20211121, end: 20211123
  28. NACL SOLUTION [Concomitant]
     Indication: Hypotension
     Route: 042
     Dates: start: 20211123, end: 20211124
  29. NACL SOLUTION [Concomitant]
     Route: 042
     Dates: start: 20211124, end: 20211125
  30. CEFTRIAXONE [Concomitant]
     Active Substance: CEFTRIAXONE
     Indication: Pyrexia
     Route: 042
     Dates: start: 20211121, end: 20211123
  31. ONDANSETRON [Concomitant]
     Active Substance: ONDANSETRON
     Indication: Prophylaxis of nausea and vomiting
     Route: 042
     Dates: start: 20211122
  32. ACETAMINOPHEN [Concomitant]
     Active Substance: ACETAMINOPHEN
     Indication: Pyrexia
     Route: 042
     Dates: start: 20211122, end: 20211124
  33. PIPERACILLIN SODIUM [Concomitant]
     Active Substance: PIPERACILLIN SODIUM
     Indication: Pyrexia
     Route: 042
     Dates: start: 20211123, end: 20211126
  34. TAZOBACTAM [Concomitant]
     Active Substance: TAZOBACTAM
     Indication: Pyrexia
     Route: 042
     Dates: start: 20211123, end: 20211126
  35. HEPARIN [Concomitant]
     Active Substance: HEPARIN SODIUM
     Indication: Thrombosis prophylaxis
     Route: 042
     Dates: start: 20211125, end: 20211126
  36. HEPARIN [Concomitant]
     Active Substance: HEPARIN SODIUM
     Route: 042
     Dates: start: 20211129, end: 20211130
  37. VALACYCLOVIR HYDROCHLORIDE [Concomitant]
     Active Substance: VALACYCLOVIR HYDROCHLORIDE
     Indication: Antiviral prophylaxis
     Route: 048
  38. SODIUM ALGINATE\SODIUM BICARBONATE [Concomitant]
     Active Substance: SODIUM ALGINATE\SODIUM BICARBONATE
     Indication: Gastritis prophylaxis
     Dosage: 500/267 MG
     Route: 048
     Dates: start: 20211128, end: 20211128
  39. CLOTTAFACT [Concomitant]
     Active Substance: FIBRINOGEN HUMAN
     Indication: Blood fibrinogen decreased
     Route: 042
     Dates: start: 20211128, end: 20211128

REACTIONS (2)
  - Lymphocytosis [Recovered/Resolved]
  - Hypotension [Recovered/Resolved]

NARRATIVE: CASE EVENT DATE: 20211123
